FAERS Safety Report 20102370 (Version 1)
Quarter: 2021Q4

REPORT INFORMATION
  Report Type: Spontaneous
  Country: US (occurrence: US)
  Receive Date: 20211123
  Receipt Date: 20211123
  Transmission Date: 20220303
  Serious: No
  Sender: FDA-Public Use
  Company Number: US-NOVOPROD-801756

PATIENT
  Sex: Female

DRUGS (1)
  1. NOVOLOG MIX 70/30 [Suspect]
     Active Substance: INSULIN ASPART
     Indication: Product used for unknown indication
     Dosage: 35 IU, BID (35 UNITS AM AND 35 UNITS PM)
     Route: 058
     Dates: start: 202101

REACTIONS (2)
  - Decreased appetite [Unknown]
  - Blood glucose increased [Unknown]
